FAERS Safety Report 5810537-6 (Version None)
Quarter: 2008Q3

REPORT INFORMATION
  Report Type: 
  Country: None (occurrence: None)
  Receive Date: 20080715
  Receipt Date: 20080710
  Transmission Date: 20090109
  Serious: Yes (Life-Threatening, Hospitalization, Other)
  Sender: FDA-Public Use
  Company Number: US-ASTRAZENECA-2008UW07781

PATIENT
  Age: 16 Year
  Sex: Male
  Weight: 57.3 kg

DRUGS (6)
  1. SYMBICORT [Suspect]
     Indication: ASTHMA
     Dosage: 160/4.5 TWO PUFFS BID
     Route: 055
     Dates: start: 20080310, end: 20080410
  2. ALBUTEROL [Concomitant]
  3. ALLEGRA [Concomitant]
  4. PREVACID [Concomitant]
  5. SINGULAIR [Concomitant]
  6. MULTI-VITAMIN [Concomitant]

REACTIONS (4)
  - PALPITATIONS [None]
  - VENTRICULAR DYSFUNCTION [None]
  - VENTRICULAR HYPOKINESIA [None]
  - VENTRICULAR TACHYCARDIA [None]
